FAERS Safety Report 15805982 (Version 2)
Quarter: 2019Q1

REPORT INFORMATION
  Report Type: Spontaneous
  Country: IN (occurrence: IN)
  Receive Date: 20190110
  Receipt Date: 20190121
  Transmission Date: 20190417
  Serious: Yes (Life-Threatening, Hospitalization)
  Sender: FDA-Public Use
  Company Number: IN-CIPLA LTD.-2019IN00043

PATIENT

DRUGS (1)
  1. AMLODIPINE [Suspect]
     Active Substance: AMLODIPINE BESYLATE
     Dosage: 900 MG, IN TOTAL (90 TABLETS OF 10 MG EACH)
     Route: 048

REACTIONS (10)
  - Intentional overdose [Unknown]
  - Varicose vein [Recovering/Resolving]
  - Ascites [Recovering/Resolving]
  - Sinus tachycardia [Recovering/Resolving]
  - Shock [Recovering/Resolving]
  - Acute kidney injury [Recovering/Resolving]
  - Oedema peripheral [Recovering/Resolving]
  - Suicide attempt [Unknown]
  - Pleural effusion [Recovering/Resolving]
  - Respiratory failure [Recovering/Resolving]
